FAERS Safety Report 5400290-2 (Version None)
Quarter: 2007Q3

REPORT INFORMATION
  Report Type: 
  Country: None (occurrence: None)
  Receive Date: 20070730
  Receipt Date: 20070723
  Transmission Date: 20080115
  Serious: Yes (Other)
  Sender: FDA-Public Use
  Company Number: CN-BRISTOL-MYERS SQUIBB COMPANY-13854674

PATIENT
  Age: 32 Year
  Sex: Male
  Weight: 63 kg

DRUGS (3)
  1. BARACLUDE [Suspect]
     Indication: HEPATITIS B
     Route: 048
     Dates: start: 20070312
  2. ESSENTIALE [Concomitant]
  3. TIOPRONIN [Concomitant]

REACTIONS (1)
  - NEPHROTIC SYNDROME [None]
